FAERS Safety Report 18858994 (Version 1)
Quarter: 2021Q1

REPORT INFORMATION
  Report Type: Spontaneous
  Country: US (occurrence: US)
  Receive Date: 20210205
  Receipt Date: 20210205
  Transmission Date: 20210420
  Serious: Yes (Death)
  Sender: FDA-Public Use
  Company Number: None

PATIENT
  Age: 77 Year
  Sex: Male

DRUGS (22)
  1. LOSARTAN POT [Concomitant]
     Active Substance: LOSARTAN POTASSIUM
  2. ALBUTEROL NEB [Concomitant]
     Active Substance: ALBUTEROL
  3. ATORVASTATIN [Concomitant]
     Active Substance: ATORVASTATIN
  4. BUDES/FORMOT AER [Concomitant]
  5. GLIMEPIRIDE. [Concomitant]
     Active Substance: GLIMEPIRIDE
  6. NAC 600 [Concomitant]
  7. OMPERAZOLE [Concomitant]
     Active Substance: OMEPRAZOLE
  8. ESBRIET [Suspect]
     Active Substance: PIRFENIDONE
     Indication: PULMONARY FIBROSIS
     Route: 048
     Dates: start: 20200530, end: 20210112
  9. FLUTIC/SALME [Concomitant]
  10. FUROSEMIDE. [Concomitant]
     Active Substance: FUROSEMIDE
  11. JANUVIA [Concomitant]
     Active Substance: SITAGLIPTIN PHOSPHATE
  12. NOVOLOG [Concomitant]
     Active Substance: INSULIN ASPART
  13. PREDNISONE. [Concomitant]
     Active Substance: PREDNISONE
  14. SOD CHLORIDE [Concomitant]
     Active Substance: SODIUM CHLORIDE
  15. TAMSULOSIN [Concomitant]
     Active Substance: TAMSULOSIN
  16. ALBUTEROL AER [Concomitant]
     Active Substance: ALBUTEROL
  17. POT CHLORIDE ER [Concomitant]
  18. HUMULIN NOS [Concomitant]
     Active Substance: INSULIN HUMAN
  19. METFORMIN [Concomitant]
     Active Substance: METFORMIN HYDROCHLORIDE
  20. METOPROL SUC ER [Concomitant]
     Active Substance: METOPROLOL SUCCINATE
  21. TEMAZEPAM. [Concomitant]
     Active Substance: TEMAZEPAM
  22. MONTELUKAST [Concomitant]
     Active Substance: MONTELUKAST SODIUM

REACTIONS (1)
  - Death [None]

NARRATIVE: CASE EVENT DATE: 20210112
